FAERS Safety Report 8869656 (Version 1)
Quarter: 2012Q4

REPORT INFORMATION
  Report Type: 
  Country: BR (occurrence: BR)
  Receive Date: 20121028
  Receipt Date: 20121028
  Transmission Date: 20130627
  Serious: Yes (Other)
  Sender: FDA-Public Use
  Company Number: BR-JNJFOC-20121012998

PATIENT
  Sex: Female
  Weight: 49.9 kg

DRUGS (14)
  1. REMICADE [Suspect]
     Indication: RHEUMATOID ARTHRITIS
     Route: 042
  2. REMICADE [Suspect]
     Indication: RHEUMATOID ARTHRITIS
     Route: 042
     Dates: start: 20111201
  3. CALCIUM CARBONATE [Concomitant]
     Route: 048
  4. CYCLOBENZAPRINE [Concomitant]
     Route: 048
  5. CYCLOSPORINE [Concomitant]
     Route: 048
  6. DIPYRONE [Concomitant]
     Route: 048
  7. ENALAPRIL [Concomitant]
     Route: 048
  8. HYDROCHLOROTHIAZIDE [Concomitant]
     Route: 048
  9. LEFLUNOMIDE [Concomitant]
     Route: 048
  10. MELOXICAM [Concomitant]
     Route: 048
  11. OMEPRAZOLE [Concomitant]
     Route: 048
  12. PAROXETINE [Concomitant]
     Route: 048
  13. PREDNISONE [Concomitant]
     Route: 048
  14. VITAMIN D3 [Concomitant]
     Route: 048

REACTIONS (4)
  - Tachycardia [Recovered/Resolved]
  - Hyperaemia [Recovered/Resolved]
  - Infusion related reaction [Recovered/Resolved]
  - Malaise [Recovered/Resolved]
